FAERS Safety Report 5896083-2 (Version None)
Quarter: 2008Q3

REPORT INFORMATION
  Report Type: 
  Country: None (occurrence: None)
  Receive Date: 20080924
  Receipt Date: 20080923
  Transmission Date: 20090109
  Serious: Yes (Hospitalization)
  Sender: FDA-Public Use
  Company Number: US-B.I. PHARMACEUTICALS,INC./RIDGEFIELD-2008-BP-11971BP

PATIENT
  Sex: Female

DRUGS (4)
  1. SPIRIVA [Suspect]
     Indication: CHRONIC OBSTRUCTIVE PULMONARY DISEASE
     Dosage: 18MCG
     Route: 055
     Dates: start: 20070101
  2. SYNTHROID [Concomitant]
     Indication: HYPOTHYROIDISM
     Dosage: .125MG
     Route: 048
     Dates: start: 19680101
  3. COREG [Concomitant]
     Indication: CARDIAC FAILURE CONGESTIVE
     Dosage: 50MG
     Route: 048
     Dates: start: 20070101
  4. FUROSEMIDE [Concomitant]

REACTIONS (1)
  - CHONDROPATHY [None]
